FAERS Safety Report 10391990 (Version 1)
Quarter: 2014Q3

REPORT INFORMATION
  Report Type: Report from Study
  Country: BR (occurrence: BR)
  Receive Date: 20140819
  Receipt Date: 20140819
  Transmission Date: 20150326
  Serious: Yes (Other)
  Sender: FDA-Public Use
  Company Number: PHHY2014BR102558

PATIENT
  Sex: Female
  Weight: 46 kg

DRUGS (2)
  1. ACLASTA [Suspect]
     Active Substance: ZOLEDRONIC ACID
     Indication: OSTEOPOROSIS
     Dosage: UNK UKN, ONCE A YEAR
     Route: 042
     Dates: start: 20130919
  2. OSTEONUTRI [Concomitant]
     Dosage: 1 DF, DAILY
     Dates: start: 2012

REACTIONS (2)
  - Blindness [Recovering/Resolving]
  - Cataract [Recovering/Resolving]
